FAERS Safety Report 5904234-6 (Version None)
Quarter: 2008Q3

REPORT INFORMATION
  Report Type: 
  Country: None (occurrence: None)
  Receive Date: 20080909
  Receipt Date: 20071121
  Transmission Date: 20090109
  Serious: Yes (Hospitalization)
  Sender: FDA-Public Use
  Company Number: 163-20785-07111331

PATIENT
  Age: 69 Year
  Sex: Male
  Weight: 90.3 kg

DRUGS (18)
  1. THALOMID [Suspect]
     Indication: MULTIPLE MYELOMA
     Dosage: 200-50MG, ORAL
     Route: 048
     Dates: start: 20060502, end: 20071016
  2. DEXAMETHASONE TAB [Suspect]
     Indication: MULTIPLE MYELOMA
     Dosage: 40-20MG
     Dates: start: 20060502, end: 20070922
  3. VELCADE [Suspect]
     Indication: MULTIPLE MYELOMA
     Dosage: 1MG/M2
     Dates: start: 20060429, end: 20070928
  4. ACYCLOVIR (ACICLOVIR) (TABLETS) [Concomitant]
  5. XANAX [Concomitant]
  6. REMERON [Concomitant]
  7. VITAMIN B-6 (PYRIDOXINE HYDROCHLORIDE) (TABLETS) [Concomitant]
  8. CALCIUM CARBONATE (CALCIUM CARBONATE) (TABLETS) [Concomitant]
  9. FOLIC ACID (FOLIC ACID) (TABLETS) [Concomitant]
  10. ZYRTEC [Concomitant]
  11. NEXIUM [Concomitant]
  12. OXYCODONE (OXYCODONE) (TABLETS) [Concomitant]
  13. NEURONTIN [Concomitant]
  14. BACTRIM DS [Concomitant]
  15. MAGNESIUM OXIDE (MAGNESIUM OXIDE) (TABLETS) [Concomitant]
  16. VITAMIN D (ERGOCALCIFEROL) (CAPSULES) [Concomitant]
  17. PREDNISONE (PREDNISONE) (TABLETS) [Concomitant]
  18. LOVENOX [Concomitant]

REACTIONS (2)
  - OEDEMA PERIPHERAL [None]
  - PYREXIA [None]
